FAERS Safety Report 17809458 (Version 2)
Quarter: 2025Q2

REPORT INFORMATION
  Report Type: Report from Study
  Country: FR (occurrence: FR)
  Receive Date: 20200521
  Receipt Date: 20250621
  Transmission Date: 20250717
  Serious: Yes (Other)
  Sender: AUROBINDO
  Company Number: FR-TEVA-2020-FR-1234326

PATIENT
  Age: 40 Year
  Sex: Male

DRUGS (2)
  1. AMOXICILLIN [Suspect]
     Active Substance: AMOXICILLIN
     Indication: Antibiotic therapy
     Route: 065
  2. CEFPODOXIME [Suspect]
     Active Substance: CEFPODOXIME
     Indication: Antibiotic therapy
     Route: 065

REACTIONS (2)
  - Acute generalised exanthematous pustulosis [Unknown]
  - Cross sensitivity reaction [Unknown]
